FAERS Safety Report 9795033 (Version 1)
Quarter: 2014Q1

REPORT INFORMATION
  Report Type: Spontaneous
  Country: GB (occurrence: GB)
  Receive Date: 20140102
  Receipt Date: 20140102
  Transmission Date: 20141002
  Serious: Yes (Other)
  Sender: FDA-Public Use
  Company Number: GB-BAXTER-2013BAX052700

PATIENT
  Sex: Male
  Weight: 70 kg

DRUGS (5)
  1. EXTRANEAL (ICODEXTRIN 7.5%) SOLUTION FOR PERITONEAL DIALYSIS [Suspect]
     Indication: PERITONEAL DIALYSIS
     Route: 033
     Dates: start: 20131102
  2. EXTRANEAL (ICODEXTRIN 7.5%) SOLUTION FOR PERITONEAL DIALYSIS [Suspect]
     Route: 033
     Dates: end: 20131207
  3. PHYSIONEAL 40 GLUCOSE 1.36% W/V / 13.6 MG/ML, SOLUTION FOR PERITONEAL [Suspect]
     Indication: PERITONEAL DIALYSIS
     Route: 033
  4. PHYSIONEAL 40 GLUCOSE 1.36% W/V / 13.6 MG/ML, SOLUTION FOR PERITONEAL [Suspect]
     Route: 033
  5. GENTAMICIN [Suspect]
     Indication: ANTIBIOTIC THERAPY
     Route: 033
     Dates: start: 20131202, end: 20131205

REACTIONS (6)
  - Peritoneal cloudy effluent [Unknown]
  - White blood cell count increased [Unknown]
  - Constipation [Unknown]
  - Malaise [Unknown]
  - Rash [Unknown]
  - Discomfort [Unknown]
